FAERS Safety Report 9512020 (Version 1)
Quarter: 2013Q1

REPORT INFORMATION
  Report Type: Spontaneous
  Country: US (occurrence: None)
  Receive Date: 20130305
  Receipt Date: 20130305
  Transmission Date: 20140127
  Serious: Yes (Disabling)
  Sender: FDA-Public Use
  Company Number: 163-21880-11112090

PATIENT
  Age: 66 Year
  Sex: Male

DRUGS (3)
  1. REVLIMID [Suspect]
     Indication: PRODUCT USED FOR UNKNOWN INDICATION
     Dosage: 25 MG, 1 IN 1 D, PO
     Route: 048
     Dates: start: 201012
  2. VELCADE (UNKNOWN) [Suspect]
     Dates: end: 201111
  3. CISPLATIN ( CISPLATIN) (UNKNOWN) [Concomitant]

REACTIONS (6)
  - Neuropathy peripheral [None]
  - Peripheral coldness [None]
  - Pain in extremity [None]
  - Rash [None]
  - Dyspnoea [None]
  - Pneumonia [None]
